FAERS Safety Report 25941241 (Version 1)
Quarter: 2025Q4

REPORT INFORMATION
  Report Type: Spontaneous
  Country: US (occurrence: None)
  Receive Date: 20251019
  Receipt Date: 20251019
  Transmission Date: 20260117
  Serious: Yes (Life-Threatening, Hospitalization, Disabling)
  Sender: FDA-CTU
  Company Number: None

PATIENT
  Age: 53 Year
  Sex: Male

DRUGS (1)
  1. BUPRENORPHINE [Suspect]
     Active Substance: BUPRENORPHINE

REACTIONS (8)
  - Soliloquy [None]
  - Confusional state [None]
  - Mydriasis [None]
  - Disorientation [None]
  - Abnormal behaviour [None]
  - Quality of life decreased [None]
  - Drug dependence [None]
  - Drug ineffective [None]

NARRATIVE: CASE EVENT DATE: 20251019
